FAERS Safety Report 19199714 (Version 1)
Quarter: 2021Q2

REPORT INFORMATION
  Report Type: Spontaneous
  Country: US (occurrence: US)
  Receive Date: 20210430
  Receipt Date: 20210430
  Transmission Date: 20210717
  Serious: No
  Sender: FDA-Public Use
  Company Number: US-ASTRAZENECA-2021A265292

PATIENT
  Age: 80 Year
  Sex: Female
  Weight: 49.9 kg

DRUGS (1)
  1. TAGRISSO [Suspect]
     Active Substance: OSIMERTINIB
     Indication: NEOPLASM MALIGNANT
     Route: 048

REACTIONS (3)
  - Pyrexia [Recovering/Resolving]
  - Feeling abnormal [Unknown]
  - Insomnia [Unknown]
